FAERS Safety Report 6712865-9 (Version None)
Quarter: 2010Q2

REPORT INFORMATION
  Report Type: 
  Country: None (occurrence: None)
  Receive Date: 20100505
  Receipt Date: 20100505
  Transmission Date: 20101027
  Serious: Yes (Life-Threatening)
  Sender: FDA-Public Use
  Company Number: None

PATIENT
  Age: 44 Year
  Sex: Female
  Weight: 109.1 kg

DRUGS (1)
  1. CAPZASIN HP [Suspect]
     Indication: ARTHRALGIA
     Dosage: SMALL AMOUNT
     Dates: start: 20100421

REACTIONS (3)
  - APPLICATION SITE BURN [None]
  - APPLICATION SITE VESICLES [None]
  - BURNS FIRST DEGREE [None]
